FAERS Safety Report 9555645 (Version 3)
Quarter: 2013Q3

REPORT INFORMATION
  Report Type: Spontaneous
  Country: TR (occurrence: TR)
  Receive Date: 20130926
  Receipt Date: 20130927
  Transmission Date: 20140515
  Serious: Yes (Death, Hospitalization)
  Sender: FDA-Public Use
  Company Number: PHHY2013TR102375

PATIENT
  Age: 50 Year
  Sex: Female

DRUGS (4)
  1. AFINITOR [Suspect]
     Indication: NEUROENDOCRINE CARCINOMA
     Dosage: 10 MG, DAILY
     Route: 048
     Dates: start: 201301
  2. AFINITOR [Suspect]
     Route: 048
  3. CO-DIOVAN [Concomitant]
     Indication: HYPERTENSION
     Route: 048
  4. NORVASC [Concomitant]
     Indication: HYPERTENSION
     Dosage: 10 MG, UNK
     Route: 048

REACTIONS (2)
  - Sudden death [Fatal]
  - Atypical pneumonia [Recovered/Resolved]
